FAERS Safety Report 11880844 (Version 1)
Quarter: 2015Q4

REPORT INFORMATION
  Report Type: Report from Study
  Country: US (occurrence: US)
  Receive Date: 20151230
  Receipt Date: 20151230
  Transmission Date: 20160305
  Serious: Yes (Hospitalization)
  Sender: FDA-Public Use
  Company Number: US-ACTELION-A-NJ2014-95725

PATIENT
  Age: 52 Year
  Sex: Female

DRUGS (6)
  1. VELETRI [Suspect]
     Active Substance: EPOPROSTENOL
     Indication: PULMONARY ARTERIAL HYPERTENSION
     Dosage: 10 NG/KG, PER MIN
     Route: 042
     Dates: start: 20130918
  2. DIURETICS [Concomitant]
     Active Substance: UNSPECIFIED INGREDIENT
  3. ANTIDEPRESSANTS [Concomitant]
     Active Substance: UNSPECIFIED INGREDIENT
  4. VELETRI [Suspect]
     Active Substance: EPOPROSTENOL
     Dosage: 11.5 NG/KG, PER MIN
     Route: 042
     Dates: start: 20130918
  5. COUMADIN [Concomitant]
     Active Substance: WARFARIN SODIUM
  6. VELETRI [Suspect]
     Active Substance: EPOPROSTENOL
     Dosage: 19.5 NG/KG, PER MIN
     Route: 042
     Dates: start: 20130925

REACTIONS (11)
  - Device occlusion [Unknown]
  - Thrombosis in device [Recovered/Resolved]
  - Device related infection [Recovered/Resolved]
  - Catheter site erythema [Unknown]
  - Culture positive [Recovered/Resolved]
  - Dermatitis contact [Recovered/Resolved]
  - Culture negative [Unknown]
  - Migraine [Recovered/Resolved]
  - Catheter placement [Recovered/Resolved]
  - Catheter site infection [Unknown]
  - Device alarm issue [Unknown]

NARRATIVE: CASE EVENT DATE: 20140531
